FAERS Safety Report 6930714-0 (Version None)
Quarter: 2010Q3

REPORT INFORMATION
  Report Type: 
  Country: None (occurrence: None)
  Receive Date: 20100813
  Receipt Date: 20100730
  Transmission Date: 20110219
  Serious: Yes (Life-Threatening)
  Sender: FDA-Public Use
  Company Number: 201007AGG00943

PATIENT
  Age: 88 Year
  Sex: Male
  Weight: 70 kg

DRUGS (1)
  1. TIROFIBAN HYDROCHLORIDE (AGGRASTAT (TIROFIBAN HYDROCHLORIDE)) [Suspect]
     Indication: ACUTE MYOCARDIAL INFARCTION
     Dosage: (6ML/H INTRAVENOUS (NOT OTHERWISE SPECIFIED))
     Route: 042
     Dates: start: 20100707, end: 20100707

REACTIONS (2)
  - SHOCK HAEMORRHAGIC [None]
  - THROMBOCYTOPENIA [None]
